FAERS Safety Report 15180872 (Version 1)
Quarter: 2018Q3

REPORT INFORMATION
  Report Type: Spontaneous
  Country: US (occurrence: US)
  Receive Date: 20180723
  Receipt Date: 20180723
  Transmission Date: 20181010
  Serious: Yes (Death, Hospitalization)
  Sender: FDA-Public Use
  Company Number: US-LPDUSPRD-20181319

PATIENT
  Age: 60 Year
  Sex: Male

DRUGS (5)
  1. LENALIDOMIDE [Suspect]
     Active Substance: LENALIDOMIDE
     Dosage: 15?20 MG DAYS 1?21
     Route: 048
  2. RITUXIMAB. [Suspect]
     Active Substance: RITUXIMAB
     Dosage: 375 MG/M2  DAYS1,8,15,22
     Route: 042
  3. DEXAMETHASONE. [Suspect]
     Active Substance: DEXAMETHASONE
     Dosage: 20?40MG DAYS 1,8,15,22
     Route: 048
  4. BORTEZOMIB. [Suspect]
     Active Substance: BORTEZOMIB
     Dosage: 1?3 MG/M2  DAY1,8,15,22
     Route: 058
  5. DEXAMETHASONE SODIUM PHOSPHATE INJECTION, USP (4901?25) [Suspect]
     Active Substance: DEXAMETHASONE SODIUM PHOSPHATE
     Dosage: 20?40MG DAY 1,8,15,22
     Route: 042

REACTIONS (5)
  - Thrombocytopenia [Unknown]
  - Sepsis [Unknown]
  - Disease progression [Fatal]
  - Diarrhoea [Unknown]
  - Renal failure [Unknown]
